FAERS Safety Report 16453866 (Version 1)
Quarter: 2019Q2

REPORT INFORMATION
  Report Type: Spontaneous
  Country: US (occurrence: US)
  Receive Date: 20190619
  Receipt Date: 20190619
  Transmission Date: 20190711
  Serious: Yes (Hospitalization)
  Sender: FDA-Public Use
  Company Number: US-AMGEN-USASP2019095644

PATIENT
  Sex: Female

DRUGS (2)
  1. IMLYGIC [Suspect]
     Active Substance: TALIMOGENE LAHERPAREPVEC
     Indication: MALIGNANT MELANOMA
     Dosage: 2 MILLILITER, (10^6)
     Route: 026
     Dates: start: 20190517, end: 20190517
  2. IMLYGIC [Suspect]
     Active Substance: TALIMOGENE LAHERPAREPVEC
     Dosage: 2 MILLILITER, (10^8)
     Route: 026
     Dates: start: 20190607

REACTIONS (1)
  - Immune-mediated adverse reaction [Unknown]

NARRATIVE: CASE EVENT DATE: 20190608
